FAERS Safety Report 11239005 (Version 1)
Quarter: 2015Q3

REPORT INFORMATION
  Report Type: Report from Study
  Country: US (occurrence: US)
  Receive Date: 20150706
  Receipt Date: 20150706
  Transmission Date: 20151125
  Serious: No
  Sender: FDA-Public Use
  Company Number: PHEH2015US008802

PATIENT
  Age: 34 Year
  Sex: Female
  Weight: 42.2 kg

DRUGS (7)
  1. COLACE [Concomitant]
     Active Substance: DOCUSATE SODIUM
     Indication: CONSTIPATION
     Dosage: 100 MG, QD
     Route: 048
     Dates: start: 20150616
  2. NEURONTIN [Concomitant]
     Active Substance: GABAPENTIN
     Indication: PAIN
     Dosage: 300 MG, TID
     Route: 048
     Dates: start: 20140812
  3. VALIUM [Concomitant]
     Active Substance: DIAZEPAM
     Indication: MUSCLE SPASMS
     Dosage: 5 MG, PRN (8 HOURS)
     Route: 048
     Dates: start: 20140627
  4. GILENYA [Suspect]
     Active Substance: FINGOLIMOD HYDROCHLORIDE
     Indication: MULTIPLE SCLEROSIS
     Dosage: 0.5 MG, QD
     Route: 048
     Dates: start: 20120416
  5. GILENYA [Suspect]
     Active Substance: FINGOLIMOD HYDROCHLORIDE
     Dosage: 0.5 MG, QD
     Route: 048
     Dates: start: 20150102
  6. PERCOCET [Concomitant]
     Active Substance: ACETAMINOPHEN\OXYCODONE HYDROCHLORIDE
     Indication: PAIN
     Dosage: 1 DF, PRN (S-325 MG 1 TABLET Q 4 HOURS)
     Route: 048
  7. FENTANYL. [Concomitant]
     Active Substance: FENTANYL
     Indication: PAIN
     Dosage: 50 UG, UNK
     Route: 062

REACTIONS (5)
  - Fatigue [Unknown]
  - Dizziness [Recovered/Resolved]
  - Nephrolithiasis [Unknown]
  - Dizziness [Unknown]
  - Fatigue [Recovered/Resolved]

NARRATIVE: CASE EVENT DATE: 20150113
